FAERS Safety Report 20422153 (Version 2)
Quarter: 2022Q2

REPORT INFORMATION
  Report Type: Spontaneous
  Country: FR (occurrence: FR)
  Receive Date: 20220203
  Receipt Date: 20220405
  Transmission Date: 20220720
  Serious: Yes (Hospitalization, Other)
  Sender: FDA-Public Use
  Company Number: None

PATIENT
  Age: 68 Year
  Sex: Male
  Weight: 68 kg

DRUGS (11)
  1. COMIRNATY [Suspect]
     Active Substance: TOZINAMERAN
     Indication: COVID-19 immunisation
     Dosage: DOSE 3 (BOOSTER), SINGLE
     Route: 030
     Dates: start: 20211210, end: 20211210
  2. CARBOPLATIN [Suspect]
     Active Substance: CARBOPLATIN
     Indication: Bronchial carcinoma
     Dosage: 1 DF, EVERY 3 WEEKS
     Route: 042
     Dates: start: 20210902, end: 20211112
  3. KEYTRUDA [Suspect]
     Active Substance: PEMBROLIZUMAB
     Indication: Bronchial carcinoma
     Dosage: 1 DF, EVERY 3 WEEKS
     Route: 042
     Dates: start: 20210902, end: 20210923
  4. ALIMTA [Suspect]
     Active Substance: PEMETREXED DISODIUM
     Indication: Bronchial carcinoma
     Dosage: 1 DF, EVERY 3 WEEKS
     Route: 042
     Dates: start: 20210902, end: 20211112
  5. KARDEGIC [Concomitant]
     Active Substance: ASPIRIN DL-LYSINE
     Dosage: 75 MG, 1X/DAY
     Route: 048
  6. ATORVASTATIN [Concomitant]
     Active Substance: ATORVASTATIN
     Dosage: 20 MG, 1X/DAY
     Route: 048
  7. ACETAMINOPHEN [Concomitant]
     Active Substance: ACETAMINOPHEN
     Dosage: UNK
  8. KEPPRA [Concomitant]
     Active Substance: LEVETIRACETAM
     Dosage: UNK
  9. POTASSIUM CHLORIDE [Concomitant]
     Active Substance: POTASSIUM CHLORIDE
     Dosage: 600 MG, 2X/DAY
  10. PREDNISONE [Concomitant]
     Active Substance: PREDNISONE
     Dosage: 80 MG, 1X/DAY
  11. METHYLPREDNISOLONE [Concomitant]
     Active Substance: METHYLPREDNISOLONE
     Dosage: 80 MG, 1X/DAY
     Dates: start: 20220204

REACTIONS (28)
  - Gait disturbance [Unknown]
  - Headache [Unknown]
  - Off label use [Unknown]
  - Interchange of vaccine products [Unknown]
  - Cerebellar syndrome [Not Recovered/Not Resolved]
  - Hypothermia [Unknown]
  - Intracranial pressure increased [Unknown]
  - Systemic inflammatory response syndrome [Unknown]
  - Metastases to central nervous system [Unknown]
  - Bronchial carcinoma [Unknown]
  - Disease progression [Unknown]
  - Asthenia [Unknown]
  - General physical condition abnormal [Unknown]
  - Headache [Unknown]
  - Balance disorder [Unknown]
  - Fall [Unknown]
  - Vomiting [Unknown]
  - Nausea [Unknown]
  - Dyspnoea [Unknown]
  - Ataxia [Unknown]
  - Tendon disorder [Unknown]
  - Finger deformity [Unknown]
  - Condition aggravated [Unknown]
  - Weight decreased [Unknown]
  - Disorientation [Unknown]
  - Confusional state [Unknown]
  - Headache [Unknown]
  - Meningoradiculitis [Unknown]

NARRATIVE: CASE EVENT DATE: 20211210
